FAERS Safety Report 8346451-4 (Version None)
Quarter: 2012Q2

REPORT INFORMATION
  Report Type: 
  Country: None (occurrence: None)
  Receive Date: 20120509
  Receipt Date: 20120507
  Transmission Date: 20120825
  Serious: Yes (Other)
  Sender: FDA-Public Use
  Company Number: US-PFIZER INC-2012112200

PATIENT
  Sex: Female
  Weight: 54 kg

DRUGS (11)
  1. VITAMIN C [Concomitant]
     Indication: SUPPLEMENTATION THERAPY
     Dosage: UNK
  2. VITAMIN B-12 [Concomitant]
     Indication: SUPPLEMENTATION THERAPY
     Dosage: UNK
  3. PROBIOTICS [Concomitant]
     Indication: SUPPLEMENTATION THERAPY
     Dosage: UNK
  4. BIOTIN [Concomitant]
     Indication: SUPPLEMENTATION THERAPY
     Dosage: UNK
  5. FOLIC ACID [Concomitant]
     Indication: SUPPLEMENTATION THERAPY
     Dosage: UNK
  6. CELEBREX [Suspect]
     Indication: OSTEOARTHRITIS
     Dosage: 200 MG, 2X/DAY
     Route: 048
  7. RANITIDINE [Suspect]
     Indication: PROPHYLAXIS
     Dosage: UNK
  8. MULTI-VITAMINS [Concomitant]
     Indication: SUPPLEMENTATION THERAPY
     Dosage: UNK
  9. CALCIUM [Concomitant]
     Indication: SUPPLEMENTATION THERAPY
     Dosage: UNK
  10. CELEBREX [Suspect]
     Indication: SCOLIOSIS
  11. AVAPRO [Suspect]
     Indication: HYPERTENSION
     Dosage: 150 MG, DAILY

REACTIONS (1)
  - ARTHROPATHY [None]
